FAERS Safety Report 6568384-6 (Version None)
Quarter: 2010Q1

REPORT INFORMATION
  Report Type: 
  Country: None (occurrence: None)
  Receive Date: 20100128
  Receipt Date: 20100119
  Transmission Date: 20100710
  Serious: Yes (Hospitalization)
  Sender: FDA-Public Use
  Company Number: 2010000051

PATIENT
  Age: 55 Year
  Sex: Male
  Weight: 108.4097 kg

DRUGS (18)
  1. PROVIGIL [Suspect]
     Indication: SLEEP APNOEA SYNDROME
     Dosage: 400 MG (200 MG, 2 IN 1 D), ORAL
     Route: 048
     Dates: start: 20060101, end: 20090101
  2. PREVACID [Concomitant]
  3. VITAMIN + MINERALS (PYRIDOXINE HYDROCHLORIDE, CHOLINE, THIAMINE HYDROC [Concomitant]
  4. HYDROCODONE (HYDROCODONE) [Concomitant]
  5. URSODIOL [Concomitant]
  6. SPIRIVA [Concomitant]
  7. ASTELIN (DIPROPHYLLINE) [Concomitant]
  8. SYMBICORT [Concomitant]
  9. APIDRA [Concomitant]
  10. AVANDIA [Concomitant]
  11. METFORMIN HCL [Concomitant]
  12. AVAPRO [Concomitant]
  13. FEXOFENADINE HCL [Concomitant]
  14. ASPIRIN [Concomitant]
  15. GLUCOSAMINE CHONDROITIN (GLUCOSAMINE) [Concomitant]
  16. DIOVAN [Concomitant]
  17. CONCERTA [Concomitant]
  18. SINGULAIR [Concomitant]

REACTIONS (8)
  - BLOOD CHOLESTEROL INCREASED [None]
  - BLOOD GLUCOSE INCREASED [None]
  - CHRONIC OBSTRUCTIVE PULMONARY DISEASE [None]
  - GASTRIC BYPASS [None]
  - HEART RATE INCREASED [None]
  - LOW DENSITY LIPOPROTEIN INCREASED [None]
  - POST PROCEDURAL COMPLICATION [None]
  - RESPIRATORY RATE INCREASED [None]
